FAERS Safety Report 14330751 (Version 3)
Quarter: 2018Q1

REPORT INFORMATION
  Report Type: Report from Study
  Country: None (occurrence: US)
  Receive Date: 20171228
  Receipt Date: 20180126
  Transmission Date: 20180509
  Serious: Yes (Hospitalization, Other)
  Sender: FDA-Public Use
  Company Number: US-ABBVIE-17K-163-2203704-00

PATIENT
  Age: 61 Year
  Sex: Female

DRUGS (5)
  1. OCTAGAM IMMUNE GLOBULIN (HUMAN) [Concomitant]
     Active Substance: HUMAN IMMUNOGLOBULIN G
     Indication: HYPOGAMMAGLOBULINAEMIA
     Route: 042
     Dates: start: 201604, end: 201709
  2. GAMUNEX [Suspect]
     Active Substance: HUMAN IMMUNOGLOBULIN G
     Indication: HYPOGAMMAGLOBULINAEMIA
     Route: 042
     Dates: start: 20171031, end: 2017
  3. HUMIRA [Suspect]
     Active Substance: ADALIMUMAB
     Indication: PSORIATIC ARTHROPATHY
     Route: 058
     Dates: start: 201707, end: 20171123
  4. IVIGLOB EX [Concomitant]
     Active Substance: HUMAN IMMUNOGLOBULIN G
     Indication: PRODUCT USED FOR UNKNOWN INDICATION
  5. VANCOMYCIN [Suspect]
     Active Substance: VANCOMYCIN
     Indication: BACTERIAL INFECTION
     Route: 042
     Dates: start: 201712, end: 201712

REACTIONS (31)
  - Rash papular [Recovered/Resolved]
  - Back pain [Recovered/Resolved]
  - White blood cell count decreased [Recovered/Resolved]
  - Furuncle [Recovered/Resolved]
  - Rash generalised [Recovering/Resolving]
  - Immunoglobulins decreased [Recovered/Resolved]
  - Chills [Recovered/Resolved]
  - Skin fissures [Not Recovered/Not Resolved]
  - Acarodermatitis [Recovered/Resolved]
  - Restlessness [Recovered/Resolved]
  - Rash pustular [Recovered/Resolved]
  - Disturbance in attention [Recovered/Resolved]
  - Bacterial infection [Recovered/Resolved]
  - Nasopharyngitis [Unknown]
  - Hypertension [Not Recovered/Not Resolved]
  - Erythema [Not Recovered/Not Resolved]
  - Neutrophil count decreased [Recovered/Resolved]
  - Skin papilloma [Recovering/Resolving]
  - Peripheral swelling [Recovering/Resolving]
  - Skin fissures [Unknown]
  - Rash pustular [Recovering/Resolving]
  - Skin hyperplasia [Recovering/Resolving]
  - Dermatitis [Recovering/Resolving]
  - Dry skin [Not Recovered/Not Resolved]
  - Erythema [Recovering/Resolving]
  - Papule [Not Recovered/Not Resolved]
  - Cellulitis staphylococcal [Recovered/Resolved]
  - Eczema [Recovering/Resolving]
  - Skin papilloma [Recovering/Resolving]
  - Pyrexia [Recovered/Resolved]
  - Tachycardia [Recovered/Resolved]

NARRATIVE: CASE EVENT DATE: 2017
